FAERS Safety Report 13305139 (Version 2)
Quarter: 2017Q1

REPORT INFORMATION
  Report Type: Spontaneous
  Country: CH (occurrence: CH)
  Receive Date: 20170308
  Receipt Date: 20170313
  Transmission Date: 20170428
  Serious: Yes (Other)
  Sender: FDA-Public Use
  Company Number: PHHY2017CH033618

PATIENT
  Sex: Female

DRUGS (5)
  1. FEMARA [Suspect]
     Active Substance: LETROZOLE
     Indication: INVASIVE DUCTAL BREAST CARCINOMA
     Dosage: UNK
     Route: 065
     Dates: start: 201010, end: 201510
  2. CYCLOPHOSPHAMIDE. [Suspect]
     Active Substance: CYCLOPHOSPHAMIDE
     Indication: INVASIVE DUCTAL BREAST CARCINOMA
     Dosage: UNK
     Route: 065
  3. DOCETAXEL. [Suspect]
     Active Substance: DOCETAXEL
     Indication: INVASIVE DUCTAL BREAST CARCINOMA
     Dosage: UNK
     Route: 065
  4. HERCEPTIN [Suspect]
     Active Substance: TRASTUZUMAB
     Indication: INVASIVE DUCTAL BREAST CARCINOMA
     Dosage: UNK
     Route: 065
     Dates: start: 201010
  5. DENOSUMAB [Suspect]
     Active Substance: DENOSUMAB
     Indication: INVASIVE DUCTAL BREAST CARCINOMA
     Dosage: UNK
     Route: 065

REACTIONS (19)
  - Uterine mass [Unknown]
  - Paranasal sinus neoplasm [Unknown]
  - Dyspnoea [Unknown]
  - Breast mass [Unknown]
  - Respiration abnormal [Unknown]
  - Pain [Unknown]
  - General physical health deterioration [Unknown]
  - Muscle mass [Unknown]
  - Sialoadenitis [Unknown]
  - Skin mass [Unknown]
  - Limb mass [Unknown]
  - Neck mass [Unknown]
  - Thyroid mass [Unknown]
  - Nasal disorder [Unknown]
  - Parotid gland enlargement [Unknown]
  - Chronic obstructive pulmonary disease [Unknown]
  - Rosai-Dorfman syndrome [Unknown]
  - Histiocytosis [Unknown]
  - Pulmonary arterial hypertension [Unknown]

NARRATIVE: CASE EVENT DATE: 2011
